FAERS Safety Report 15368523 (Version 2)
Quarter: 2018Q4

REPORT INFORMATION
  Report Type: Spontaneous
  Country: US (occurrence: US)
  Receive Date: 20180910
  Receipt Date: 20181017
  Transmission Date: 20190204
  Serious: Yes (Life-Threatening, Hospitalization, Other)
  Sender: FDA-Public Use
  Company Number: US-PRINSTON PHARMACEUTICAL INC.-2018PRN01106

PATIENT
  Age: 74 Year
  Sex: Male
  Weight: 79.37 kg

DRUGS (25)
  1. GLIMEPIRIDE. [Suspect]
     Active Substance: GLIMEPIRIDE
     Dosage: 4 MG, 1X/DAY
     Route: 048
     Dates: start: 2014, end: 201711
  2. GLIMEPIRIDE (PAR) [Suspect]
     Active Substance: GLIMEPIRIDE
     Dosage: 3 MG, 1X/DAY IN THE MORNING
     Route: 048
     Dates: start: 201803
  3. EZETIMIBE/SIMVASTATIN [Concomitant]
     Active Substance: EZETIMIBE\SIMVASTATIN
     Dosage: 1 TABLETS, 1X/DAY
  4. ASPIRIN. [Concomitant]
     Active Substance: ASPIRIN
     Dosage: 81 MG, 1X/DAY
  5. ALPRAZOLAM. [Concomitant]
     Active Substance: ALPRAZOLAM
     Dosage: UNK
  6. HYDROCHLOROTHIAZIDE. [Concomitant]
     Active Substance: HYDROCHLOROTHIAZIDE
     Dosage: 25 MG, 1X/DAY
     Dates: start: 1998
  7. POTASSIUM CL ER [Concomitant]
     Active Substance: POTASSIUM CHLORIDE
  8. BENADRYL [Concomitant]
     Active Substance: DIPHENHYDRAMINE HYDROCHLORIDE
     Dosage: 25 MG, 2X/DAY
  9. DOXAZOSIN MESYLATE. [Concomitant]
     Active Substance: DOXAZOSIN MESYLATE
     Dosage: 8 MG, 2X/DAY
  10. GLIMEPIRIDE. [Suspect]
     Active Substance: GLIMEPIRIDE
     Indication: TYPE 2 DIABETES MELLITUS
     Dosage: 2 MG, 1X/DAY
     Route: 048
     Dates: start: 2014, end: 2014
  11. GLIMEPIRIDE (CARLSBAD) [Suspect]
     Active Substance: GLIMEPIRIDE
     Dosage: 4 MG, UNK
     Route: 048
  12. ATENOLOL. [Concomitant]
     Active Substance: ATENOLOL
     Dosage: 20 MG, 2X/DAY
  13. VENTOLIN HFA [Concomitant]
     Active Substance: ALBUTEROL SULFATE
     Dosage: 2 DOSAGE UNITS, AS NEEDED
  14. SAW PALMETTO [Concomitant]
     Active Substance: HERBALS\SAW PALMETTO
     Dosage: 450 MG, 1X/DAY
  15. ALEVE [Concomitant]
     Active Substance: NAPROXEN SODIUM
     Dosage: 200 MG, 2X/DAY
  16. PEPCID [Concomitant]
     Active Substance: FAMOTIDINE
     Dosage: 20 MG, AS NEEDED
  17. BEVESPI AEROSPHERE [Concomitant]
     Active Substance: FORMOTEROL FUMARATE\GLYCOPYRROLATE
     Dosage: 2 DOSAGE UNITS, 2X/DAY
  18. NETTLE ROOT [Concomitant]
     Dosage: UNK
  19. CLARITIN [Concomitant]
     Active Substance: LORATADINE
     Dosage: 10 MG, 1X/DAY
  20. GLIMEPIRIDE (CARLSBAD) [Suspect]
     Active Substance: GLIMEPIRIDE
     Indication: TYPE 2 DIABETES MELLITUS
     Dosage: 2 MG, UNK
     Route: 048
     Dates: start: 201711
  21. GLIMEPIRIDE (PAR) [Suspect]
     Active Substance: GLIMEPIRIDE
     Indication: TYPE 2 DIABETES MELLITUS
     Dosage: 4 MG, 1X/DAY IN THE MORNING
     Route: 048
     Dates: end: 201803
  22. FUROSEMIDE. [Suspect]
     Active Substance: FUROSEMIDE
     Dosage: 1 TABLETS
  23. ZYRTEC [Concomitant]
     Active Substance: CETIRIZINE HYDROCHLORIDE
     Dosage: 10 MG, 1X/DAY
  24. PROBIOTICS [Concomitant]
     Active Substance: PROBIOTICS NOS
     Dosage: UNK, 1X/DAY
  25. TAGAMET [Concomitant]
     Active Substance: CIMETIDINE
     Dosage: 20 MG, AS NEEDED

REACTIONS (14)
  - Clostridium difficile infection [Unknown]
  - Dehydration [Unknown]
  - Diabetic coma [Unknown]
  - Pneumonia [Recovered/Resolved]
  - Gastrointestinal motility disorder [Unknown]
  - Peripheral vascular disorder [Not Recovered/Not Resolved]
  - Weight decreased [Unknown]
  - Blood glucose decreased [Not Recovered/Not Resolved]
  - Myocardial infarction [Unknown]
  - Device occlusion [None]
  - Foreign body in respiratory tract [Unknown]
  - Apparent death [Recovered/Resolved]
  - Feeding disorder [Unknown]
  - Asthenia [Recovered/Resolved]

NARRATIVE: CASE EVENT DATE: 201711
